FAERS Safety Report 5151366-9 (Version None)
Quarter: 2006Q4

REPORT INFORMATION
  Report Type: 
  Country: None (occurrence: None)
  Receive Date: 20061115
  Receipt Date: 20061103
  Transmission Date: 20070319
  Serious: Yes (Disabling)
  Sender: FDA-Public Use
  Company Number: PHBS2006CH17123

PATIENT
  Age: 81 Year
  Sex: Female

DRUGS (5)
  1. ZOMETA [Suspect]
     Indication: BREAST CANCER METASTATIC
     Dosage: 4 MG, PER MONTH
     Route: 042
     Dates: start: 20040601
  2. FASLODEX [Concomitant]
     Indication: BREAST CANCER METASTATIC
     Dosage: 1 DF, PER MONTH
     Route: 065
  3. DIAMICRON [Concomitant]
     Indication: DIABETES MELLITUS NON-INSULIN-DEPENDENT
     Dosage: 80 MG/D
     Route: 065
  4. DILZEM [Concomitant]
     Indication: HYPERTENSION
     Dosage: 240 MG/D
     Route: 065
  5. TRAMADOL HCL [Concomitant]
     Dosage: 200 MG/D
     Route: 065

REACTIONS (11)
  - ACTINOMYCOSIS [None]
  - BONE DISORDER [None]
  - BONE FRAGMENTATION [None]
  - EXCESSIVE GRANULATION TISSUE [None]
  - FISTULA [None]
  - HYPERPLASIA [None]
  - INFECTION [None]
  - INFLAMMATION [None]
  - OSTEONECROSIS [None]
  - SEQUESTRECTOMY [None]
  - WOUND CLOSURE [None]
